FAERS Safety Report 23468355 (Version 1)
Quarter: 2024Q1

REPORT INFORMATION
  Report Type: Report from Study
  Country: BE (occurrence: BE)
  Receive Date: 20240202
  Receipt Date: 20240202
  Transmission Date: 20240410
  Serious: Yes (Other)
  Sender: FDA-Public Use
  Company Number: BE-Vifor (International) Inc.-VIT-2024-00645

PATIENT
  Age: 68 Year
  Sex: Male

DRUGS (3)
  1. AVACOPAN [Suspect]
     Active Substance: AVACOPAN
     Indication: Anti-neutrophil cytoplasmic antibody positive vasculitis
     Dosage: 30 MILLIGRAM
     Route: 065
     Dates: start: 20230701, end: 20240119
  2. AVACOPAN [Suspect]
     Active Substance: AVACOPAN
     Indication: Pulmonary vasculitis
  3. AVACOPAN [Suspect]
     Active Substance: AVACOPAN
     Indication: Ear, nose and throat disorder

REACTIONS (3)
  - General physical health deterioration [Not Recovered/Not Resolved]
  - Cardiac failure [Not Recovered/Not Resolved]
  - Metal poisoning [Unknown]

NARRATIVE: CASE EVENT DATE: 20240117
